FAERS Safety Report 10812085 (Version 1)
Quarter: 2015Q1

REPORT INFORMATION
  Report Type: Spontaneous
  Country: US (occurrence: None)
  Receive Date: 20150213
  Receipt Date: 20150213
  Transmission Date: 20150721
  Serious: Yes (Disabling, Congenital Anomaly)
  Sender: FDA-Public Use
  Company Number: None

PATIENT
  Sex: Male
  Weight: 10.89 kg

DRUGS (1)
  1. ZOFRAN [Suspect]
     Active Substance: ONDANSETRON HYDROCHLORIDE
     Indication: VOMITING IN PREGNANCY

REACTIONS (4)
  - Optic nerve hypoplasia [None]
  - Blindness congenital [None]
  - Septo-optic dysplasia [None]
  - Foetal exposure during pregnancy [None]

NARRATIVE: CASE EVENT DATE: 20121227
